FAERS Safety Report 16617637 (Version 3)
Quarter: 2019Q3

REPORT INFORMATION
  Report Type: Report from Study
  Country: DE (occurrence: DE)
  Receive Date: 20190723
  Receipt Date: 20190731
  Transmission Date: 20191004
  Serious: Yes (Hospitalization)
  Sender: FDA-Public Use
  Company Number: DE-ROCHE-2355820

PATIENT
  Age: 53 Year
  Sex: Female
  Weight: 54.5 kg

DRUGS (15)
  1. BLINDED ATEZOLIZUMAB [Suspect]
     Active Substance: ATEZOLIZUMAB
     Indication: OVARIAN CANCER
     Dosage: DATE OF MOST RECENT DOSE OF ATEZOLIZUMAB/PLACEBO PRIOR TO SAE ONSET: 19/JUN/2019
     Route: 042
     Dates: start: 20180129
  2. NOVALGIN (METAMIZOLE SODIUM) [Concomitant]
     Active Substance: METAMIZOLE SODIUM
     Route: 065
     Dates: start: 20180509
  3. NOVALGIN (METAMIZOLE SODIUM) [Concomitant]
     Active Substance: METAMIZOLE SODIUM
     Route: 065
     Dates: start: 20180226
  4. MUCOFALK [PLANTAGO OVATA] [Concomitant]
     Active Substance: HERBALS\PLANTAGO OVATA LEAF
     Route: 065
     Dates: start: 20180418
  5. ZINK [ZINC] [Concomitant]
     Route: 065
     Dates: start: 20180129, end: 201802
  6. XARELTO [Concomitant]
     Active Substance: RIVAROXABAN
     Route: 065
     Dates: start: 20181220
  7. VITAMIN B [Concomitant]
     Active Substance: VITAMIN B
     Route: 065
     Dates: start: 20170817
  8. BEVACIZUMAB. [Suspect]
     Active Substance: BEVACIZUMAB
     Indication: OVARIAN CANCER
     Dosage: DATE OF MOST RECENT DOSE OF BEVACIZUMAB PRIOR TO SAE ONSET: 19/JUN/2019 (840 MG)
     Route: 042
     Dates: start: 20180221
  9. MAGNESIUM [Concomitant]
     Active Substance: MAGNESIUM
     Indication: HYPOMAGNESAEMIA
     Route: 065
     Dates: start: 20180702
  10. VAGISAN [DL- LACTIC ACID;SODIUM LACTATE] [Concomitant]
     Route: 065
     Dates: start: 20190111
  11. PACLITAXEL. [Suspect]
     Active Substance: PACLITAXEL
     Indication: OVARIAN CANCER
     Dosage: DATE OF MOST RECENT DOSE OF PACLITAXEL PRIOR TO SAE ONSET: 30/MAY/2018 AT 279 MG
     Route: 042
     Dates: start: 20180129
  12. CARBOPLATIN. [Suspect]
     Active Substance: CARBOPLATIN
     Indication: OVARIAN CANCER
     Dosage: DATE OF MOST RECENT DOSE OF CARBOPLATIN PRIOR TO SAE ONSET: 30/MAY/2018 AT 732 MG?6 MG/ML*MIN
     Route: 042
     Dates: start: 20180129
  13. PANTOZOL [Concomitant]
     Active Substance: PANTOPRAZOLE SODIUM
     Route: 065
     Dates: start: 20180129
  14. MOVICOL [Concomitant]
     Active Substance: POLYETHYLENE GLYCOL 3350\POTASSIUM CHLORIDE\SODIUM BICARBONATE\SODIUM CHLORIDE
  15. VITAMIN B1 [Concomitant]
     Active Substance: THIAMINE HYDROCHLORIDE
     Route: 065
     Dates: start: 20180129

REACTIONS (1)
  - Diarrhoea haemorrhagic [Not Recovered/Not Resolved]

NARRATIVE: CASE EVENT DATE: 20190620
